FAERS Safety Report 25884864 (Version 1)
Quarter: 2025Q4

REPORT INFORMATION
  Report Type: Spontaneous
  Country: US (occurrence: None)
  Receive Date: 20251004
  Receipt Date: 20251004
  Transmission Date: 20260117
  Serious: Yes (Disabling)
  Sender: FDA-CTU
  Company Number: None

PATIENT
  Age: 35 Year
  Sex: Female
  Weight: 60.75 kg

DRUGS (1)
  1. CELEXA [Suspect]
     Active Substance: CITALOPRAM HYDROBROMIDE
     Indication: Anxiety
     Dates: start: 20150615, end: 20250901

REACTIONS (6)
  - Loss of libido [None]
  - Emotional disorder [None]
  - Memory impairment [None]
  - Acne [None]
  - Brain fog [None]
  - Sensory disturbance [None]

NARRATIVE: CASE EVENT DATE: 20160615
